FAERS Safety Report 4558275-4 (Version None)
Quarter: 2005Q1

REPORT INFORMATION
  Report Type: 
  Country: None (occurrence: None)
  Receive Date: 20050121
  Receipt Date: 20050112
  Transmission Date: 20050727
  Serious: Yes (Hospitalization)
  Sender: FDA-Public Use
  Company Number: FR-JNJFOC-20050102387

PATIENT
  Age: 18 Year
  Sex: Male

DRUGS (4)
  1. DAKTARIN [Suspect]
     Indication: DRUG USE FOR UNKNOWN INDICATION
     Route: 049
  2. INTETRIX [Suspect]
     Route: 049
  3. INTETRIX [Suspect]
     Route: 049
  4. INTETRIX [Suspect]
     Indication: DRUG USE FOR UNKNOWN INDICATION
     Route: 049

REACTIONS (4)
  - CONJUNCTIVITIS [None]
  - FACE OEDEMA [None]
  - MEDICATION ERROR [None]
  - PRURITUS [None]
